FAERS Safety Report 10238355 (Version 2)
Quarter: 2014Q4

REPORT INFORMATION
  Report Type: Spontaneous
  Country: BR (occurrence: BR)
  Receive Date: 20140616
  Receipt Date: 20141002
  Transmission Date: 20150528
  Serious: Yes (Other)
  Sender: FDA-Public Use
  Company Number: BR-JNJFOC-20140604350

PATIENT
  Age: 74 Year
  Sex: Female

DRUGS (11)
  1. LEXOTAN [Concomitant]
     Active Substance: BROMAZEPAM
     Indication: PRODUCT USED FOR UNKNOWN INDICATION
     Route: 048
     Dates: start: 2012
  2. TRAMAL [Suspect]
     Active Substance: TRAMADOL
     Indication: BACK PAIN
     Route: 065
     Dates: end: 201404
  3. FELDENE [Suspect]
     Active Substance: PIROXICAM
     Indication: BONE PAIN
     Route: 042
     Dates: end: 201404
  4. NEXIUM [Suspect]
     Active Substance: ESOMEPRAZOLE MAGNESIUM
     Indication: CHRONIC GASTRITIS
     Route: 048
  5. NEXIUM [Suspect]
     Active Substance: ESOMEPRAZOLE MAGNESIUM
     Indication: GASTRITIS
     Route: 048
     Dates: start: 2010
  6. FELDENE [Suspect]
     Active Substance: PIROXICAM
     Indication: BACK PAIN
     Route: 042
     Dates: end: 201404
  7. NEXIUM [Suspect]
     Active Substance: ESOMEPRAZOLE MAGNESIUM
     Indication: CHRONIC GASTRITIS
     Route: 048
     Dates: start: 2010
  8. NORVASC [Suspect]
     Active Substance: AMLODIPINE BESYLATE
     Indication: HYPERTENSION
     Route: 065
     Dates: start: 2001, end: 2012
  9. TRAMAL [Suspect]
     Active Substance: TRAMADOL
     Indication: BONE PAIN
     Route: 065
     Dates: end: 201404
  10. CALCIUM CARBONATE W/COLECALCIFEROL [Suspect]
     Active Substance: CALCIUM CARBONATE\CHOLECALCIFEROL
     Indication: VITAMIN D DEFICIENCY
     Route: 048
     Dates: start: 2014, end: 2014
  11. NEXIUM [Suspect]
     Active Substance: ESOMEPRAZOLE MAGNESIUM
     Indication: GASTRITIS
     Route: 048

REACTIONS (13)
  - Blood glucose increased [Not Recovered/Not Resolved]
  - Tachycardia [Not Recovered/Not Resolved]
  - Flatulence [Not Recovered/Not Resolved]
  - Chronic gastritis [Unknown]
  - Bone pain [Not Recovered/Not Resolved]
  - Back pain [Not Recovered/Not Resolved]
  - Abdominal pain upper [Unknown]
  - Vitamin D deficiency [Not Recovered/Not Resolved]
  - Gastritis [Unknown]
  - Malaise [Not Recovered/Not Resolved]
  - Helicobacter infection [Unknown]
  - Weight decreased [Recovering/Resolving]
  - Blood pressure fluctuation [Recovering/Resolving]

NARRATIVE: CASE EVENT DATE: 201311
